FAERS Safety Report 11553035 (Version 1)
Quarter: 2015Q3

REPORT INFORMATION
  Report Type: Spontaneous
  Country: US (occurrence: None)
  Receive Date: 20150925
  Receipt Date: 20150925
  Transmission Date: 20151125
  Serious: No
  Sender: FDA-Public Use
  Company Number: US-MDT-ADR-2015-01846

PATIENT
  Age: 4 Year
  Sex: Male

DRUGS (2)
  1. ACETAMINOPHEN. [Suspect]
     Active Substance: ACETAMINOPHEN
     Dosage: 330 MG ORAL AS NEEDED
  2. LIORESAL [Suspect]
     Active Substance: BACLOFEN
     Indication: MUSCLE SPASTICITY
     Dosage: 99.92 MCG/DAY

REACTIONS (5)
  - Speech disorder [None]
  - Joint contracture [None]
  - Hypotonia [None]
  - Hypertonia [None]
  - Muscle spasticity [None]
